FAERS Safety Report 9098518 (Version 1)
Quarter: 2013Q1

REPORT INFORMATION
  Report Type: Spontaneous
  Country: US (occurrence: US)
  Receive Date: 20130213
  Receipt Date: 20130213
  Transmission Date: 20140127
  Serious: Yes (Other)
  Sender: FDA-Public Use
  Company Number: PHEH2013US003389

PATIENT
  Sex: Female

DRUGS (6)
  1. DIOVAN [Suspect]
  2. DIOVAN [Suspect]
     Dosage: UNK UKN, UNK
  3. DIOVAN HCT [Suspect]
  4. ASPIRIN [Concomitant]
     Dosage: 350 MG, UNK
  5. SYNTHROID [Concomitant]
     Dosage: 112 UG, UNK
  6. METOPROLOL [Concomitant]

REACTIONS (1)
  - Atrial fibrillation [Unknown]
